FAERS Safety Report 5994204-4 (Version None)
Quarter: 2008Q4

REPORT INFORMATION
  Report Type: 
  Country: None (occurrence: None)
  Receive Date: 20081212
  Receipt Date: 20080916
  Transmission Date: 20090506
  Serious: No
  Sender: FDA-Public Use
  Company Number: US-ABBOTT-08P-163-0474100-00

PATIENT
  Sex: Male
  Weight: 81.72 kg

DRUGS (6)
  1. HUMIRA [Suspect]
     Indication: PSORIASIS
     Route: 058
     Dates: start: 20080801, end: 20080801
  2. HUMIRA [Suspect]
     Route: 058
     Dates: start: 20080815, end: 20080815
  3. HUMIRA [Suspect]
     Dosage: LOADING DOSE
     Route: 058
     Dates: start: 20080829, end: 20080829
  4. HUMIRA [Suspect]
     Route: 058
     Dates: start: 20080915, end: 20080915
  5. MEFENAMIC ACID [Concomitant]
     Indication: MYALGIA
     Dosage: 1-2 TABS AS NEEDED
     Route: 048
  6. CO-ADVIL [Concomitant]
     Indication: SINUS CONGESTION
     Dosage: 1-2 TABLETS AS NEEDED
     Route: 048

REACTIONS (7)
  - DRUG INEFFECTIVE [None]
  - INJECTION SITE IRRITATION [None]
  - INJECTION SITE PAIN [None]
  - INJECTION SITE RASH [None]
  - INJECTION SITE REACTION [None]
  - INJECTION SITE SWELLING [None]
  - PSORIASIS [None]
